FAERS Safety Report 20936070 (Version 1)
Quarter: 2022Q2

REPORT INFORMATION
  Report Type: Spontaneous
  Country: US (occurrence: None)
  Receive Date: 20220609
  Receipt Date: 20220609
  Transmission Date: 20220721
  Serious: No
  Sender: FDA-Public Use
  Company Number: US-ROCHE-2848832

PATIENT
  Age: 81 Year
  Sex: Female
  Weight: 60.836 kg

DRUGS (5)
  1. ACTEMRA [Suspect]
     Active Substance: TOCILIZUMAB
     Indication: Giant cell arteritis
     Dosage: YES
     Route: 058
     Dates: start: 20210413
  2. ACTEMRA [Suspect]
     Active Substance: TOCILIZUMAB
     Indication: Polymyalgia rheumatica
  3. PREDNISONE [Concomitant]
     Active Substance: PREDNISONE
     Dates: start: 20210113
  4. METHYLPREDNISOLONE [Concomitant]
     Active Substance: METHYLPREDNISOLONE
     Indication: Giant cell arteritis
     Dosage: TAPERED DOSE ;ONGOING: YES
  5. METHYLPREDNISOLONE [Concomitant]
     Active Substance: METHYLPREDNISOLONE
     Indication: Polymyalgia rheumatica

REACTIONS (1)
  - Alopecia [Not Recovered/Not Resolved]

NARRATIVE: CASE EVENT DATE: 20210512
